FAERS Safety Report 10254944 (Version 2)
Quarter: 2014Q3

REPORT INFORMATION
  Report Type: Spontaneous
  Country: GB (occurrence: GB)
  Receive Date: 20140624
  Receipt Date: 20140702
  Transmission Date: 20150326
  Serious: Yes (Other)
  Sender: FDA-Public Use
  Company Number: GB-MERCK-1406GBR009475

PATIENT

DRUGS (1)
  1. JANUVIA [Suspect]
     Active Substance: SITAGLIPTIN PHOSPHATE
     Dosage: UNK
     Route: 048

REACTIONS (3)
  - Cerebrovascular accident [Unknown]
  - Gastrointestinal tube insertion [Unknown]
  - Dysphagia [Unknown]
